FAERS Safety Report 8131284-4 (Version None)
Quarter: 2012Q1

REPORT INFORMATION
  Report Type: 
  Country: None (occurrence: None)
  Receive Date: 20120213
  Receipt Date: 20120208
  Transmission Date: 20120608
  Serious: Yes (Death, Life-Threatening)
  Sender: FDA-Public Use
  Company Number: DE-GENZYME-CLOF-1001990

PATIENT
  Age: 70 Year
  Sex: Male
  Weight: 87 kg

DRUGS (26)
  1. LIQUIFILM [Concomitant]
     Indication: PRODUCT USED FOR UNKNOWN INDICATION
     Dosage: 1 DF, Q3HR
     Route: 065
  2. ENALAPRIL MALEATE [Concomitant]
     Indication: PRODUCT USED FOR UNKNOWN INDICATION
     Dosage: 10 UNK, UNK
     Route: 048
  3. LERCANIDIPINE [Concomitant]
     Indication: PRODUCT USED FOR UNKNOWN INDICATION
     Dosage: 10 UNK, UNK
     Route: 048
  4. EVOLTRA [Suspect]
     Indication: ACUTE MYELOID LEUKAEMIA
     Dosage: 60 MG, DAYS 1-5
     Route: 042
     Dates: start: 20111212, end: 20111216
  5. CEFTAZIDIME SODIUM [Concomitant]
     Indication: PRODUCT USED FOR UNKNOWN INDICATION
     Dosage: 1 G, QD
     Route: 042
     Dates: start: 20111206
  6. EUSAPRIM [Concomitant]
     Indication: ANTIFUNGAL PROPHYLAXIS
     Dosage: 1 AMP
     Route: 042
     Dates: end: 20111226
  7. POLYETHYLENE GLYCOL [Concomitant]
     Indication: PRODUCT USED FOR UNKNOWN INDICATION
     Dosage: 1 DF, QD
     Route: 065
  8. ENALAPRIL MALEATE [Concomitant]
     Dosage: 10/25 UNK
     Route: 048
  9. CLEMASTINE FUMARATE [Concomitant]
     Indication: PRODUCT USED FOR UNKNOWN INDICATION
     Dosage: 1 AMP TID
     Route: 042
  10. CYTARABINE [Suspect]
     Indication: ACUTE MYELOID LEUKAEMIA
     Dosage: 2000 MG, DAYS 1-4
     Route: 042
     Dates: start: 20111213, end: 20111216
  11. ALLOPURINOL [Concomitant]
     Indication: PRODUCT USED FOR UNKNOWN INDICATION
     Dosage: 100 UNK, UNK
     Route: 065
  12. INFLANEFRAN [Concomitant]
     Indication: PRODUCT USED FOR UNKNOWN INDICATION
     Dosage: 1 DF, QID
     Route: 065
  13. ATOVAQUONE [Concomitant]
     Indication: ANTIFUNGAL PROPHYLAXIS
     Dosage: 5 ML, BID
     Route: 048
  14. KALINOR-BRAUSETABLETTEN [Concomitant]
     Indication: PRODUCT USED FOR UNKNOWN INDICATION
     Dosage: UNK
     Route: 065
  15. CALCIVIT D [Concomitant]
     Indication: PRODUCT USED FOR UNKNOWN INDICATION
     Dosage: 1 DF, QD
     Route: 065
  16. ADALAT [Concomitant]
     Indication: PRODUCT USED FOR UNKNOWN INDICATION
     Dosage: 5 MG, PRN
     Route: 060
  17. MAGNESIUM VERLA [Concomitant]
     Indication: PRODUCT USED FOR UNKNOWN INDICATION
     Dosage: 1 DF, QD
     Route: 065
  18. AMBISOME [Concomitant]
     Indication: INFECTION
     Dosage: 200 MG, QD
     Route: 042
     Dates: start: 20111208, end: 20111227
  19. TIGECYCLINE [Concomitant]
     Indication: PRODUCT USED FOR UNKNOWN INDICATION
     Dosage: 50 MG, BID
     Route: 065
     Dates: start: 20111216
  20. NITROGLYCERIN [Concomitant]
     Indication: PRODUCT USED FOR UNKNOWN INDICATION
     Dosage: 2 SPRAYS AS NEEDED
     Route: 045
  21. KONAKION [Concomitant]
     Indication: PRODUCT USED FOR UNKNOWN INDICATION
     Dosage: 1 AMP, UNK
     Route: 065
  22. TAMSULOSIN HCL [Concomitant]
     Indication: PRODUCT USED FOR UNKNOWN INDICATION
     Dosage: 0.4 UNK, QD
     Route: 048
  23. ACYCLOVIR [Concomitant]
     Indication: PRODUCT USED FOR UNKNOWN INDICATION
     Dosage: 250 MG, AFTER DIALYSIS
     Route: 042
  24. VFEND [Concomitant]
     Indication: PRODUCT USED FOR UNKNOWN INDICATION
     Dosage: 200 MG, UNK
     Route: 048
     Dates: start: 20111208
  25. ACYCLOVIR [Concomitant]
     Dosage: 400 UNK, UNK
     Route: 048
  26. FOLSAN [Concomitant]
     Indication: PRODUCT USED FOR UNKNOWN INDICATION
     Dosage: 5 MG, UNK
     Route: 048

REACTIONS (4)
  - ENCEPHALOPATHY [None]
  - RENAL FAILURE [None]
  - MULTI-ORGAN FAILURE [None]
  - SEPSIS [None]
